FAERS Safety Report 24663307 (Version 1)
Quarter: 2024Q4

REPORT INFORMATION
  Report Type: Report from Study
  Country: US (occurrence: US)
  Receive Date: 20241126
  Receipt Date: 20241126
  Transmission Date: 20250115
  Serious: Yes (Other)
  Sender: RECORDATI
  Company Number: US-ORPHANEU-2024009228

PATIENT

DRUGS (8)
  1. ISTURISA [Suspect]
     Active Substance: OSILODROSTAT PHOSPHATE
     Indication: Cushing^s syndrome
     Dosage: 1 MG, BID (TABLET COMP)
     Route: 048
     Dates: start: 202408, end: 20241021
  2. ISTURISA [Suspect]
     Active Substance: OSILODROSTAT PHOSPHATE
     Indication: Ectopic ACTH syndrome
     Dosage: 2 MG, BID
     Route: 048
     Dates: end: 20241021
  3. ISTURISA [Suspect]
     Active Substance: OSILODROSTAT PHOSPHATE
     Indication: Off label use
     Dosage: 2 MG, BID (TABLET COMP)
     Route: 048
  4. LOSARTAN POTASSIUM [Concomitant]
     Active Substance: LOSARTAN POTASSIUM
     Indication: Product used for unknown indication
     Dosage: 25 MG, QD (TABLET 25 MG)
     Route: 048
     Dates: start: 20220802
  5. CHLORTHALIDONE [Concomitant]
     Active Substance: CHLORTHALIDONE
     Indication: Product used for unknown indication
     Dosage: 12.5 MG, QD (TABLET 25 MG)
     Route: 048
     Dates: start: 20220802
  6. SPIRONOLACTONE [Concomitant]
     Active Substance: SPIRONOLACTONE
     Indication: Product used for unknown indication
     Dosage: 150 MG, QD (TABLET 100 MG)
     Route: 048
     Dates: start: 20220802
  7. CARVEDILOL [Concomitant]
     Active Substance: CARVEDILOL
     Indication: Product used for unknown indication
     Dosage: 6.25 MG, BID (TABLET 6.25 MG)
     Route: 048
     Dates: start: 20220802
  8. KLOR-CON M20 [Concomitant]
     Active Substance: POTASSIUM CHLORIDE
     Indication: Product used for unknown indication
     Dosage: 120 MILLIEQUIVALENT, QD (TABLET ER)
     Route: 048
     Dates: start: 20220802

REACTIONS (2)
  - Spinal column injury [Recovered/Resolved]
  - Off label use [Recovered/Resolved]

NARRATIVE: CASE EVENT DATE: 20240801
